FAERS Safety Report 18785681 (Version 1)
Quarter: 2021Q1

REPORT INFORMATION
  Report Type: Spontaneous
  Country: US (occurrence: US)
  Receive Date: 20210125
  Receipt Date: 20210125
  Transmission Date: 20210419
  Serious: No
  Sender: FDA-Public Use
  Company Number: US-ROCHE-2613772

PATIENT

DRUGS (1)
  1. RITUXAN [Suspect]
     Active Substance: RITUXIMAB
     Indication: GLOMERULONEPHRITIS MEMBRANOUS
     Route: 065

REACTIONS (10)
  - Skin exfoliation [Unknown]
  - Migraine [Unknown]
  - Vomiting [Unknown]
  - Off label use [Unknown]
  - Nausea [Unknown]
  - Intentional product use issue [Unknown]
  - Rash [Unknown]
  - Chest discomfort [Unknown]
  - Diarrhoea [Unknown]
  - Weight decreased [Unknown]
